FAERS Safety Report 20609817 (Version 2)
Quarter: 2022Q1

REPORT INFORMATION
  Report Type: Spontaneous
  Country: CZ (occurrence: CZ)
  Receive Date: 20220318
  Receipt Date: 20220328
  Transmission Date: 20220423
  Serious: Yes (Other)
  Sender: FDA-Public Use
  Company Number: CZ-BIOGEN-2022BI01104672

PATIENT
  Age: 24 Year
  Sex: Female

DRUGS (4)
  1. TYSABRI [Suspect]
     Active Substance: NATALIZUMAB
     Indication: Multiple sclerosis
     Dosage: TYSABRI 150MG 2X 1 INJ. 4-6 WEEKS
     Route: 058
     Dates: start: 20211022
  2. TYSABRI [Suspect]
     Active Substance: NATALIZUMAB
     Dosage: TYSABRI 150MG 2X 1 INJ. 4-6 WEEKS
     Route: 058
     Dates: start: 20211022
  3. DIENOGEST\ETHINYL ESTRADIOL [Concomitant]
     Active Substance: DIENOGEST\ETHINYL ESTRADIOL
     Indication: Product used for unknown indication
     Dosage: JEANINE 2/0,03MG
     Route: 048
  4. VIGANTOL [Concomitant]
     Indication: Product used for unknown indication
     Route: 048

REACTIONS (3)
  - Cytomegalovirus infection [Not Recovered/Not Resolved]
  - COVID-19 [Unknown]
  - Prescribed underdose [Unknown]

NARRATIVE: CASE EVENT DATE: 20211022
